FAERS Safety Report 13718851 (Version 1)
Quarter: 2017Q3

REPORT INFORMATION
  Report Type: Spontaneous
  Country: US (occurrence: US)
  Receive Date: 20170705
  Receipt Date: 20170705
  Transmission Date: 20171127
  Serious: Yes (Other)
  Sender: FDA-Public Use
  Company Number: US-AMGEN-USASP2017098414

PATIENT
  Age: 51 Year
  Sex: Female

DRUGS (4)
  1. BELSOMRA [Concomitant]
     Active Substance: SUVOREXANT
     Dosage: UNK
  2. ADVIL [Concomitant]
     Active Substance: IBUPROFEN
     Dosage: UNK
  3. ENBREL [Suspect]
     Active Substance: ETANERCEPT
     Indication: RHEUMATOID ARTHRITIS
     Dosage: 50 MG, QWK
     Route: 058
     Dates: start: 20160331
  4. ENBREL [Suspect]
     Active Substance: ETANERCEPT
     Dosage: 50 MG, QWK
     Route: 058

REACTIONS (40)
  - Suicidal ideation [Not Recovered/Not Resolved]
  - Dyspnoea [Unknown]
  - Vomiting [Unknown]
  - Mobility decreased [Not Recovered/Not Resolved]
  - Angiopathy [Unknown]
  - Upper respiratory tract infection [Unknown]
  - Injection site bruising [Unknown]
  - Injection site haemorrhage [Unknown]
  - Drug effect decreased [Unknown]
  - Diarrhoea [Unknown]
  - Accidental exposure to product [Unknown]
  - Impaired healing [Unknown]
  - Unevaluable event [Unknown]
  - Feeling abnormal [Unknown]
  - Rheumatoid arthritis [Unknown]
  - Nausea [Unknown]
  - Stress [Not Recovered/Not Resolved]
  - Pyrexia [Unknown]
  - Injection site reaction [Unknown]
  - Cardiac discomfort [Unknown]
  - Epistaxis [Not Recovered/Not Resolved]
  - Underdose [Unknown]
  - Anxiety [Unknown]
  - Nasal congestion [Unknown]
  - Ear discomfort [Unknown]
  - Loss of consciousness [Unknown]
  - Scab [Not Recovered/Not Resolved]
  - Crying [Unknown]
  - Carotid artery disease [Unknown]
  - Blood test abnormal [Unknown]
  - Fatigue [Unknown]
  - Impaired driving ability [Not Recovered/Not Resolved]
  - Nasal discharge discolouration [Unknown]
  - Weight increased [Unknown]
  - Cardiac disorder [Unknown]
  - Hypophagia [Unknown]
  - Injection site pain [Unknown]
  - Headache [Unknown]
  - Dizziness [Not Recovered/Not Resolved]
  - Depression [Unknown]

NARRATIVE: CASE EVENT DATE: 201706
